FAERS Safety Report 5832215-X (Version None)
Quarter: 2008Q3

REPORT INFORMATION
  Report Type: 
  Country: None (occurrence: None)
  Receive Date: 20080730
  Receipt Date: 20080717
  Transmission Date: 20090109
  Serious: Yes (Congenital Anomaly)
  Sender: FDA-Public Use
  Company Number: 100#03#2008-03707

PATIENT

DRUGS (3)
  1. CITALOPRAM HYDROBROMIDE [Suspect]
     Indication: DRUG EXPOSURE DURING PREGNANCY
     Dosage: 40 MG TRANSPLACENTAL
     Route: 064
     Dates: start: 20070124, end: 20080423
  2. PROPRANOLOL [Suspect]
     Indication: DRUG EXPOSURE DURING PREGNANCY
     Dosage: 10 MG THREE DAILY, TRANSPLACENTAL
     Route: 064
     Dates: start: 20070828
  3. DICLOFENAC SODIUM (DICLOFENAC) [Concomitant]

REACTIONS (3)
  - ABORTION INDUCED [None]
  - ANENCEPHALY [None]
  - DRUG EXPOSURE DURING PREGNANCY [None]
